FAERS Safety Report 5052925-4 (Version None)
Quarter: 2006Q3

REPORT INFORMATION
  Report Type: 
  Country: None (occurrence: None)
  Receive Date: 20060712
  Receipt Date: 20060516
  Transmission Date: 20061208
  Serious: Yes (Hospitalization)
  Sender: FDA-Public Use
  Company Number: 06061797

PATIENT
  Age: 87 Year
  Sex: Male

DRUGS (8)
  1. WARFARIN SODIUM [Suspect]
     Indication: ATRIAL FIBRILLATION
     Dosage: 2.5MG, QD, ORAL
     Route: 048
  2. ROYAL JELLY [Suspect]
  3. FELODIPINE [Concomitant]
  4. LISINOPRIL [Concomitant]
  5. HYDROCHLOROTHIAZIDE [Concomitant]
  6. OXYCODONE HCL [Concomitant]
  7. DILTIAZEM HCL [Concomitant]
  8. POTASSIUM (POTASSIUM CHLORIDE) [Concomitant]

REACTIONS (2)
  - HAEMATURIA [None]
  - INTERNATIONAL NORMALISED RATIO INCREASED [None]
